FAERS Safety Report 9631134 (Version 2)
Quarter: 2013Q4

REPORT INFORMATION
  Report Type: Spontaneous
  Country: IT (occurrence: IT)
  Receive Date: 20131018
  Receipt Date: 20131115
  Transmission Date: 20140711
  Serious: Yes (Hospitalization)
  Sender: FDA-Public Use
  Company Number: PHHY2013IT116335

PATIENT
  Age: 59 Year
  Sex: Female

DRUGS (2)
  1. GILENYA [Suspect]
     Indication: MULTIPLE SCLEROSIS
     Route: 048
     Dates: start: 20130117, end: 20130717
  2. URSODEOXYCHOLIC ACID [Concomitant]
     Indication: CHOLESTASIS
     Dosage: 450 MG, UNK
     Route: 048

REACTIONS (5)
  - Cholangitis sclerosing [Not Recovered/Not Resolved]
  - Red blood cell sedimentation rate increased [Not Recovered/Not Resolved]
  - Pyrexia [Not Recovered/Not Resolved]
  - Weight decreased [Not Recovered/Not Resolved]
  - Gamma-glutamyltransferase increased [Not Recovered/Not Resolved]
